FAERS Safety Report 5657937-5 (Version None)
Quarter: 2008Q1

REPORT INFORMATION
  Report Type: 
  Country: None (occurrence: None)
  Receive Date: 20080305
  Receipt Date: 20080222
  Transmission Date: 20080703
  Serious: Yes (Death, Other)
  Sender: FDA-Public Use
  Company Number: 2008-00018

PATIENT
  Age: 79 Year
  Sex: Female

DRUGS (12)
  1. VELCADE [Suspect]
     Indication: MULTIPLE MYELOMA
     Dosage: 1.75 MG, INTRAVENOUS
     Route: 042
     Dates: start: 20071119, end: 20071119
  2. METOPROLOL SUCCINATE [Concomitant]
  3. PREDNISOLONE [Concomitant]
  4. TOREM (TORASEMIDE) [Concomitant]
  5. PANTOPRAZOLE SODIUM [Concomitant]
  6. PASPERTIN (METOCLOPRAMIDE HYDROCHLORIDE) [Concomitant]
  7. NOVAMIN (PROCHLORPERAZINE) [Concomitant]
  8. MIRTAZAPINE [Concomitant]
  9. GIGIMERCK (DIGITOXIN) [Concomitant]
  10. DURAGESIC-100 [Concomitant]
  11. THROMBOPHOB (HEPARIN SODIUM) [Concomitant]
  12. FLUCONAZOLE [Concomitant]

REACTIONS (12)
  - ATRIAL FIBRILLATION [None]
  - CARDIAC ARREST [None]
  - GASTRIC HAEMORRHAGE [None]
  - GASTRIC ULCER [None]
  - GENERAL PHYSICAL HEALTH DETERIORATION [None]
  - HAEMATEMESIS [None]
  - NAUSEA [None]
  - OESOPHAGEAL CANDIDIASIS [None]
  - OXYGEN SATURATION DECREASED [None]
  - PAIN [None]
  - SOMNOLENCE [None]
  - TACHYARRHYTHMIA [None]
